FAERS Safety Report 8975713 (Version 1)
Quarter: 2012Q4

REPORT INFORMATION
  Report Type: 
  Country: OM (occurrence: OM)
  Receive Date: 20121220
  Receipt Date: 20121220
  Transmission Date: 20130627
  Serious: Yes (Other)
  Sender: FDA-Public Use
  Company Number: PHHY2012OM115508

PATIENT
  Age: 22 Year
  Sex: Male

DRUGS (5)
  1. CICLOSPORIN [Suspect]
     Indication: RENAL TRANSPLANT
     Dosage: 175 mg, BID
  2. MYCOPHENOLATE MOFETIL [Suspect]
     Indication: RENAL TRANSPLANT
     Dosage: 500 mg, BID
  3. HYDROCORTISONE [Suspect]
     Indication: RENAL TRANSPLANT
     Dosage: 100 mg, TID
  4. CO-TRIMOXAZOLE [Suspect]
     Indication: RENAL TRANSPLANT
  5. CO-TRIMOXAZOLE [Suspect]
     Indication: PROPHYLAXIS

REACTIONS (5)
  - Pulmonary haemorrhage [Unknown]
  - Zygomycosis [Unknown]
  - Pyrexia [Unknown]
  - Haemoptysis [Unknown]
  - Tachypnoea [Unknown]
